FAERS Safety Report 6852112-0 (Version None)
Quarter: 2010Q3

REPORT INFORMATION
  Report Type: 
  Country: None (occurrence: None)
  Receive Date: 20100717
  Receipt Date: 20080122
  Transmission Date: 20110219
  Serious: No
  Sender: FDA-Public Use
  Company Number: US-PFIZER INC-2007093217

PATIENT
  Age: 68 Year
  Sex: Female
  Weight: 81.8 kg

DRUGS (6)
  1. CHANTIX [Suspect]
     Indication: SMOKING CESSATION THERAPY
     Dates: start: 20071022, end: 20071101
  2. DEPAKOTE [Concomitant]
  3. NAVANE [Concomitant]
  4. BELLADONNA AND DERIVATIVES [Concomitant]
  5. ACETYLSALICYLIC ACID [Concomitant]
  6. LOVASTATIN [Concomitant]

REACTIONS (4)
  - CONSTIPATION [None]
  - DRUG INEFFECTIVE [None]
  - NAUSEA [None]
  - VOMITING [None]
